FAERS Safety Report 9478798 (Version 1)
Quarter: 2013Q3

REPORT INFORMATION
  Report Type: Spontaneous
  Country: DE (occurrence: DE)
  Receive Date: 20130827
  Receipt Date: 20130827
  Transmission Date: 20140515
  Serious: Yes (Hospitalization, Other)
  Sender: FDA-Public Use
  Company Number: DE-JNJFOC-20130811661

PATIENT
  Age: 68 Year
  Sex: Male

DRUGS (3)
  1. REMICADE [Suspect]
     Indication: RHEUMATOID ARTHRITIS
     Route: 042
     Dates: start: 2006, end: 201306
  2. RAMIPRIL [Concomitant]
     Indication: HYPERTENSION
     Route: 065
  3. HYDROCHLOROTHIAZIDE [Concomitant]
     Indication: HYPERTENSION
     Route: 065

REACTIONS (2)
  - Demyelination [Not Recovered/Not Resolved]
  - Herpes zoster [Unknown]
